FAERS Safety Report 16235688 (Version 1)
Quarter: 2019Q2

REPORT INFORMATION
  Report Type: Spontaneous
  Country: FR (occurrence: FR)
  Receive Date: 20190424
  Receipt Date: 20190424
  Transmission Date: 20190711
  Serious: Yes (Hospitalization)
  Sender: FDA-Public Use
  Company Number: FR-TEVA-2019-FR-1040933

PATIENT
  Age: 48 Year
  Sex: Female
  Weight: 90 kg

DRUGS (18)
  1. VANCOMYCIN [Concomitant]
     Active Substance: VANCOMYCIN
     Route: 042
     Dates: start: 20190208, end: 20190208
  2. LOVENOX [Concomitant]
     Active Substance: ENOXAPARIN SODIUM
     Dosage: 4000 IU (INTERNATIONAL UNIT) DAILY;
     Route: 042
     Dates: start: 20190219
  3. LEVOTHYROX 25 MICROGRAMMES, COMPRIM? S?CABLE 48 [Concomitant]
     Route: 048
  4. LEVOFLOXACIN. [Suspect]
     Active Substance: LEVOFLOXACIN
     Indication: STAPHYLOCOCCAL INFECTION
     Dosage: 750 MILLIGRAM DAILY;
     Route: 048
     Dates: start: 20190215, end: 20190227
  5. ORBENINE 1 G, POUDRE POUR SOLUTION INJECTABLE (IV) [Suspect]
     Active Substance: CLOXACILLIN SODIUM
     Indication: STAPHYLOCOCCAL INFECTION
     Dosage: 8 GRAM DAILY;
     Route: 042
     Dates: start: 20190214, end: 20190225
  6. TAZOCILLINE 4 G/500 MG, POUDRE POUR SOLUTION POUR PERFUSION [Concomitant]
     Active Substance: PIPERACILLIN SODIUM\TAZOBACTAM SODIUM
     Route: 042
     Dates: start: 20190208, end: 20190214
  7. RIFADINE 300 MG, G?LULE [Concomitant]
     Active Substance: RIFAMPIN
     Dosage: 4 DOSAGE FORMS DAILY;
     Route: 048
     Dates: start: 20190226, end: 20190227
  8. TERCIAN 40 MG/ML, SOLUTION BUVABLE EN GOUTTES [Concomitant]
     Active Substance: CYAMEMAZINE
     Dosage: 15 GTT DAILY;  ORAL SOLUTION IN DROPS, IN THE EVENING
     Route: 048
     Dates: start: 20190128
  9. DOLIPRANE [Concomitant]
     Active Substance: ACETAMINOPHEN
     Dosage: 4000 MILLIGRAM DAILY;
     Route: 048
     Dates: start: 20190125
  10. OXYNORMORO 20 MG, COMPRIM? ORODISPERSIBLE [Concomitant]
     Route: 048
     Dates: start: 20190125
  11. GLICLAZIDE [Concomitant]
     Active Substance: GLICLAZIDE
     Route: 048
  12. STAGID 700 MG, COMPRIM? S?CABLE [Concomitant]
     Active Substance: METFORMIN PAMOATE
     Dosage: 3 DOSAGE FORMS DAILY; COMPRESSED TABLET.
     Route: 048
  13. PREGABALIN. [Concomitant]
     Active Substance: PREGABALIN
     Route: 048
     Dates: start: 20190210
  14. PANTOPRAZOLE [Concomitant]
     Active Substance: PANTOPRAZOLE
     Route: 048
     Dates: start: 20190218
  15. MOVICOL [Concomitant]
     Active Substance: POLYETHYLENE GLYCOL 3350\POTASSIUM CHLORIDE\SODIUM BICARBONATE\SODIUM CHLORIDE
     Dosage: 1 DOSAGE FORMS DAILY; POWDER FOR ORAL SOLUTION IN SACHET.
     Route: 048
     Dates: start: 20190126
  16. MIRTAZAPINE. [Concomitant]
     Active Substance: MIRTAZAPINE
     Route: 048
  17. OXYCODONE [Concomitant]
     Active Substance: OXYCODONE
     Route: 048
     Dates: start: 20190225
  18. CETIRIZINE( DIHYDROCHLORATE) [Concomitant]
     Route: 048

REACTIONS (1)
  - Drug reaction with eosinophilia and systemic symptoms [Recovered/Resolved]

NARRATIVE: CASE EVENT DATE: 20190225
